FAERS Safety Report 10353853 (Version 2)
Quarter: 2014Q3

REPORT INFORMATION
  Report Type: Spontaneous
  Country: HU (occurrence: HU)
  Receive Date: 20140731
  Receipt Date: 20140805
  Transmission Date: 20150326
  Serious: Yes (Hospitalization)
  Sender: FDA-Public Use
  Company Number: HU-JNJFOC-20140720205

PATIENT
  Age: 42 Year
  Sex: Male

DRUGS (3)
  1. REMICADE [Suspect]
     Active Substance: INFLIXIMAB
     Indication: ANKYLOSING SPONDYLITIS
     Dosage: STARTED MORE THAN A YEAR AGO
     Route: 042
     Dates: start: 201305, end: 20140702
  2. NSAID [Concomitant]
     Active Substance: UNSPECIFIED INGREDIENT
     Indication: ANKYLOSING SPONDYLITIS
     Route: 065
     Dates: start: 2013
  3. STEROIDS NOS [Concomitant]
     Active Substance: UNSPECIFIED INGREDIENT
     Indication: UVEITIS
     Route: 065
     Dates: start: 2013

REACTIONS (3)
  - Necrotising retinitis [Unknown]
  - Uveitis [Recovered/Resolved with Sequelae]
  - Lower respiratory tract infection viral [Unknown]

NARRATIVE: CASE EVENT DATE: 201407
